FAERS Safety Report 16392743 (Version 4)
Quarter: 2019Q4

REPORT INFORMATION
  Report Type: Spontaneous
  Country: JP (occurrence: JP)
  Receive Date: 20190605
  Receipt Date: 20191216
  Transmission Date: 20200122
  Serious: Yes (Hospitalization, Other)
  Sender: FDA-Public Use
  Company Number: JP-GLAXOSMITHKLINE-JP2019JPN097989

PATIENT
  Age: 80 Year
  Sex: Female
  Weight: 57 kg

DRUGS (2)
  1. VALTREX [Suspect]
     Active Substance: VALACYCLOVIR HYDROCHLORIDE
     Indication: HERPES ZOSTER
     Dosage: 3000 MG, 1D
     Route: 048
     Dates: start: 20190527, end: 20190531
  2. FAMCICLOVIR. [Suspect]
     Active Substance: FAMCICLOVIR
     Indication: HERPES ZOSTER
     Dosage: 1500 MG, 1D
     Route: 048
     Dates: start: 20190514, end: 20190520

REACTIONS (21)
  - Nocturia [Unknown]
  - Feeling abnormal [Unknown]
  - Speech disorder [Unknown]
  - Eye pain [Unknown]
  - Abnormal behaviour [Unknown]
  - Renal impairment [Recovering/Resolving]
  - Altered state of consciousness [Recovering/Resolving]
  - Blood creatinine increased [Recovering/Resolving]
  - Toxic encephalopathy [Recovered/Resolved]
  - Headache [Unknown]
  - Gait disturbance [Recovering/Resolving]
  - Rash [Unknown]
  - Acute kidney injury [Recovering/Resolving]
  - CSF protein increased [Unknown]
  - Dyslalia [Unknown]
  - Disorientation [Recovering/Resolving]
  - Somnolence [Unknown]
  - Screaming [Unknown]
  - Kidney enlargement [Unknown]
  - CSF cell count increased [Unknown]
  - Conjunctival hyperaemia [Unknown]

NARRATIVE: CASE EVENT DATE: 201905
